FAERS Safety Report 20343713 (Version 2)
Quarter: 2022Q1

REPORT INFORMATION
  Report Type: Spontaneous
  Country: CA (occurrence: CA)
  Receive Date: 20220118
  Receipt Date: 20220204
  Transmission Date: 20220423
  Serious: Yes (Hospitalization)
  Sender: FDA-Public Use
  Company Number: CA-JNJFOC-20220119299

PATIENT
  Age: 38 Year
  Sex: Female
  Weight: 70 kg

DRUGS (2)
  1. REMICADE [Suspect]
     Active Substance: INFLIXIMAB
     Indication: Rheumatoid arthritis
     Route: 042
  2. PREDNISONE [Concomitant]
     Active Substance: PREDNISONE

REACTIONS (8)
  - Paralysis [Unknown]
  - Bite [Unknown]
  - Rheumatoid arthritis [Unknown]
  - Urticaria [Unknown]
  - Erythema [Unknown]
  - Pain [Unknown]
  - Therapeutic product effect decreased [Unknown]
  - Off label use [Unknown]
